FAERS Safety Report 17714646 (Version 1)
Quarter: 2020Q2

REPORT INFORMATION
  Report Type: Other
  Country: CA (occurrence: CA)
  Receive Date: 20200427
  Receipt Date: 20200427
  Transmission Date: 20200714
  Serious: Yes (Other)
  Sender: FDA-Public Use
  Company Number: CA-ASSERTIO THERAPEUTICS, INC.-CA-2020DEP000200

PATIENT
  Age: 65 Year
  Sex: Female

DRUGS (9)
  1. ACTEMRA [Suspect]
     Active Substance: TOCILIZUMAB
     Indication: PRODUCT USED FOR UNKNOWN INDICATION
     Dosage: UNK
     Route: 042
  2. NICOTINAMIDE [Concomitant]
     Active Substance: NIACINAMIDE
     Indication: PRODUCT USED FOR UNKNOWN INDICATION
     Dosage: UNK
  3. DICLOFENAC POTASSIUM. [Suspect]
     Active Substance: DICLOFENAC POTASSIUM
     Indication: PRODUCT USED FOR UNKNOWN INDICATION
     Dosage: UNK
     Route: 065
  4. PYRIDOXINE HYDROCHLORIDE. [Concomitant]
     Active Substance: PYRIDOXINE HYDROCHLORIDE
     Indication: PRODUCT USED FOR UNKNOWN INDICATION
     Dosage: UNK
  5. THIAMINE HYDROCHLORIDE. [Concomitant]
     Active Substance: THIAMINE HYDROCHLORIDE
     Indication: PRODUCT USED FOR UNKNOWN INDICATION
     Dosage: UNK
  6. TOCOTRIENOLS NOS [Concomitant]
     Indication: PRODUCT USED FOR UNKNOWN INDICATION
     Dosage: UNK
  7. VITAMIN B COMPLEX [Concomitant]
     Active Substance: CYANOCOBALAMIN\DEXPANTHENOL\NIACINAMIDE\PYRIDOXINE HYDROCHLORIDE\RIBOFLAVIN 5^-PHOSPHATE SODIUM\THIAMINE HYDROCHLORIDE\VITAMIN B COMPLEX
     Indication: PRODUCT USED FOR UNKNOWN INDICATION
     Dosage: UNK
  8. RIBOFLAVIN [Concomitant]
     Active Substance: RIBOFLAVIN
     Indication: PRODUCT USED FOR UNKNOWN INDICATION
     Dosage: UNK
  9. XANTOFYL PALMITATE [Concomitant]
     Active Substance: XANTOFYL PALMITATE
     Indication: PRODUCT USED FOR UNKNOWN INDICATION
     Dosage: UNK

REACTIONS (16)
  - Blood pressure increased [Not Recovered/Not Resolved]
  - Ear pain [Not Recovered/Not Resolved]
  - Haemoglobin decreased [Not Recovered/Not Resolved]
  - Rash erythematous [Not Recovered/Not Resolved]
  - Sinus congestion [Not Recovered/Not Resolved]
  - Gastrointestinal ulcer [Not Recovered/Not Resolved]
  - Heart rate increased [Not Recovered/Not Resolved]
  - Arthralgia [Not Recovered/Not Resolved]
  - Rheumatoid arthritis [Not Recovered/Not Resolved]
  - Abdominal pain upper [Not Recovered/Not Resolved]
  - Drug ineffective [Not Recovered/Not Resolved]
  - Fall [Not Recovered/Not Resolved]
  - Skin abrasion [Not Recovered/Not Resolved]
  - Full blood count decreased [Not Recovered/Not Resolved]
  - Haemorrhage [Not Recovered/Not Resolved]
  - Hypoaesthesia [Not Recovered/Not Resolved]
